FAERS Safety Report 9210552 (Version 1)
Quarter: 2013Q2

REPORT INFORMATION
  Report Type: Spontaneous
  Country: US (occurrence: US)
  Receive Date: 20130404
  Receipt Date: 20130404
  Transmission Date: 20140414
  Serious: No
  Sender: FDA-Public Use
  Company Number: US-ASTRAZENECA-2013SE19068

PATIENT
  Age: 2 Year
  Sex: Male
  Weight: 13.2 kg

DRUGS (2)
  1. PULMICORT RESPULES [Suspect]
     Indication: COUGH
     Route: 055
  2. ALBUTEROL [Concomitant]
     Dosage: PRN
     Route: 055
     Dates: start: 2011

REACTIONS (3)
  - C-reactive protein abnormal [Unknown]
  - Developmental delay [Unknown]
  - Off label use [Unknown]
